FAERS Safety Report 15922874 (Version 1)
Quarter: 2019Q1

REPORT INFORMATION
  Report Type: Spontaneous
  Country: US (occurrence: US)
  Receive Date: 20190206
  Receipt Date: 20190206
  Transmission Date: 20190417
  Serious: No
  Sender: FDA-Public Use
  Company Number: US-ASTRAZENECA-2019SE17174

PATIENT

DRUGS (8)
  1. HUMIRA [Concomitant]
     Active Substance: ADALIMUMAB
  2. PRILOSEC [Suspect]
     Active Substance: OMEPRAZOLE MAGNESIUM
     Route: 048
  3. XELJANZ XR [Suspect]
     Active Substance: TOFACITINIB CITRATE
     Indication: RHEUMATOID ARTHRITIS
     Route: 048
  4. ENBREL [Concomitant]
     Active Substance: ETANERCEPT
  5. METHOTREXATE. [Concomitant]
     Active Substance: METHOTREXATE
  6. ORENCIA [Concomitant]
     Active Substance: ABATACEPT
  7. LEFLUNOMIDE. [Concomitant]
     Active Substance: LEFLUNOMIDE
  8. ACTEMRA [Concomitant]
     Active Substance: TOCILIZUMAB

REACTIONS (3)
  - Rheumatoid arthritis [Unknown]
  - Fatigue [Unknown]
  - Drug hypersensitivity [Unknown]
